FAERS Safety Report 15379063 (Version 4)
Quarter: 2019Q3

REPORT INFORMATION
  Report Type: Spontaneous
  Country: CO (occurrence: CO)
  Receive Date: 20180913
  Receipt Date: 20190718
  Transmission Date: 20191004
  Serious: Yes (Hospitalization, Other)
  Sender: FDA-Public Use
  Company Number: CO-PFIZER INC-2018370005

PATIENT
  Age: 70 Year
  Sex: Female

DRUGS (2)
  1. LEFLUNOMIDE. [Concomitant]
     Active Substance: LEFLUNOMIDE
     Dosage: UNK
  2. XELJANZ [Suspect]
     Active Substance: TOFACITINIB CITRATE
     Indication: RHEUMATOID ARTHRITIS
     Dosage: 5 MG, 2X/DAY
     Route: 048
     Dates: start: 201804, end: 201809

REACTIONS (8)
  - Mastitis [Unknown]
  - Irritable bowel syndrome [Not Recovered/Not Resolved]
  - Colitis [Not Recovered/Not Resolved]
  - Infection [Unknown]
  - Herpes virus infection [Unknown]
  - Large intestine infection [Unknown]
  - Herpes zoster [Not Recovered/Not Resolved]
  - Diverticulitis [Not Recovered/Not Resolved]

NARRATIVE: CASE EVENT DATE: 20180907
